FAERS Safety Report 15995197 (Version 2)
Quarter: 2019Q1

REPORT INFORMATION
  Report Type: Report from Study
  Country: ID (occurrence: ID)
  Receive Date: 20190222
  Receipt Date: 20190301
  Transmission Date: 20190418
  Serious: Yes (Other)
  Sender: FDA-Public Use
  Company Number: ID-ASTRAZENECA-2019SE23968

PATIENT
  Sex: Female

DRUGS (1)
  1. TAGRISSO [Suspect]
     Active Substance: OSIMERTINIB
     Indication: NON-SMALL CELL LUNG CANCER
     Route: 048
     Dates: start: 20190116, end: 20190129

REACTIONS (4)
  - Pleural effusion [Unknown]
  - Malignant neoplasm progression [Unknown]
  - Neoplasm progression [Unknown]
  - Drug ineffective [Unknown]
